FAERS Safety Report 10271141 (Version 1)
Quarter: 2014Q3

REPORT INFORMATION
  Report Type: Spontaneous
  Country: GB (occurrence: GB)
  Receive Date: 20140701
  Receipt Date: 20140701
  Transmission Date: 20150326
  Serious: Yes (Other)
  Sender: FDA-Public Use
  Company Number: GB-WATSON-2014-14034

PATIENT
  Age: 44 Year
  Sex: Female

DRUGS (2)
  1. CABERGOLINE (UNKNOWN) [Suspect]
     Active Substance: CABERGOLINE
     Dosage: 0.5 MG, 1/WEEK
     Route: 065
     Dates: start: 2001, end: 2005
  2. CABERGOLINE (UNKNOWN) [Suspect]
     Active Substance: CABERGOLINE
     Indication: HYPERPROLACTINAEMIA
     Dosage: 3 MG, 1/WEEK
     Route: 065

REACTIONS (5)
  - Neck pain [Recovered/Resolved]
  - Compulsive hoarding [Unknown]
  - Binge eating [Unknown]
  - Compulsive shopping [Unknown]
  - Headache [Recovered/Resolved]
